FAERS Safety Report 10360260 (Version 1)
Quarter: 2014Q3

REPORT INFORMATION
  Report Type: Spontaneous
  Country: GB (occurrence: None)
  Receive Date: 20140730
  Receipt Date: 20140730
  Transmission Date: 20150326
  Serious: Yes (Other)
  Sender: FDA-Public Use
  Company Number: AUR-APL-2014-07959

PATIENT
  Age: 58 Year
  Sex: Female
  Weight: 79.4 kg

DRUGS (5)
  1. GABAPENTIN 100 MG (GABAPENTIN) UNKNOWN, 100 MG [Suspect]
     Active Substance: GABAPENTIN
     Indication: PAIN
     Route: 048
     Dates: start: 20140407, end: 20140409
  2. TRAMADOL HYDROCHLORIDE (TRAMADOL HYDROCHLORIDE) [Concomitant]
     Active Substance: TRAMADOL HYDROCHLORIDE
  3. NORETHISTERONE ACETATE (NORETHISTERONE ACETATE) [Concomitant]
  4. BUPRENORPHINE (BUPRENORPHINE) [Concomitant]
     Active Substance: BUPRENORPHINE
  5. ESTRADIOL (ESTRADIOL) (GEL) [Concomitant]
     Active Substance: ESTRADIOL

REACTIONS (10)
  - Migraine [None]
  - Rash [None]
  - Nausea [None]
  - Influenza like illness [None]
  - Nightmare [None]
  - Diarrhoea [None]
  - Vomiting [None]
  - Pyrexia [None]
  - Tinnitus [None]
  - Sleep disorder [None]

NARRATIVE: CASE EVENT DATE: 20140408
